FAERS Safety Report 4696467-4 (Version None)
Quarter: 2005Q2

REPORT INFORMATION
  Report Type: 
  Country: None (occurrence: None)
  Receive Date: 20050620
  Receipt Date: 20050606
  Transmission Date: 20051028
  Serious: Yes (Hospitalization, Other)
  Sender: FDA-Public Use
  Company Number: 2004035048

PATIENT
  Age: 60 Year
  Sex: Female
  Weight: 73.4827 kg

DRUGS (12)
  1. LIPITOR [Suspect]
     Indication: HYPERCHOLESTEROLAEMIA
     Dosage: 10 MG (10 MG,1 IN 1 D),ORAL
     Route: 048
     Dates: start: 20020701, end: 20040128
  2. ACETYLSALICYLIC ACID SRT [Concomitant]
  3. CALCIUM WITH VITAMIN D (CALCIUM PHOSPHATE, CALCIUM SODIUM LACTATE, ERG [Concomitant]
  4. CENTRUM (MINERALS NOS, VITAMINS NOS) [Concomitant]
  5. VITAMIN E [Concomitant]
  6. TYLENOL [Concomitant]
  7. AMOXICILLIN [Concomitant]
  8. OGEN [Concomitant]
  9. NAPROSYN [Concomitant]
  10. FISH OIL (FISH OIL) [Concomitant]
  11. FLAXSEED OIL (LINSEED OIL) [Concomitant]
  12. DIPROLENE CREAM (BETAMETHASONE DIPROPIONATE) [Concomitant]

REACTIONS (88)
  - ADVERSE DRUG REACTION [None]
  - ANAL CANCER [None]
  - ANAL NEOPLASM [None]
  - ANION GAP DECREASED [None]
  - AORTIC DILATATION [None]
  - ARTHRALGIA [None]
  - ASPIRATION [None]
  - ATRIAL FIBRILLATION [None]
  - ATRIAL FLUTTER [None]
  - BACK PAIN [None]
  - BACTERIA BLOOD IDENTIFIED [None]
  - BACTERIAL INFECTION [None]
  - BLOOD COUNT ABNORMAL [None]
  - BLOOD GLUCOSE INCREASED [None]
  - BLOOD PRESSURE DIASTOLIC DECREASED [None]
  - BLOOD SODIUM INCREASED [None]
  - BLOOD URINE PRESENT [None]
  - CARCINOEMBRYONIC ANTIGEN INCREASED [None]
  - CARDIOMEGALY [None]
  - CATHETER RELATED INFECTION [None]
  - CHILLS [None]
  - CHOKING [None]
  - CONSTIPATION [None]
  - COUGH [None]
  - CRYPTOGENIC ORGANIZING PNEUMONIA [None]
  - DECREASED APPETITE [None]
  - DIARRHOEA [None]
  - DISCOMFORT [None]
  - DIVERTICULUM [None]
  - DIZZINESS [None]
  - DYSPNOEA EXERTIONAL [None]
  - DYSURIA [None]
  - FATIGUE [None]
  - FEELING ABNORMAL [None]
  - GASTROINTESTINAL DISORDER [None]
  - HAEMATOCRIT DECREASED [None]
  - HAEMOGLOBIN DECREASED [None]
  - HEADACHE [None]
  - HEPATIC CYST [None]
  - HEPATITIS [None]
  - HOT FLUSH [None]
  - HYPERAEMIA [None]
  - HYPERHIDROSIS [None]
  - INJURY [None]
  - INTESTINAL MASS [None]
  - LIVER TENDERNESS [None]
  - LUNG DISORDER [None]
  - LUNG INFILTRATION [None]
  - LYMPHADENOPATHY [None]
  - LYMPHOCYTE PERCENTAGE DECREASED [None]
  - MALAISE [None]
  - MENOPAUSAL SYMPTOMS [None]
  - MICTURITION DISORDER [None]
  - MONOCYTE PERCENTAGE INCREASED [None]
  - MYALGIA [None]
  - NASOPHARYNGITIS [None]
  - NEUTROPHIL COUNT ABNORMAL [None]
  - NEUTROPHIL PERCENTAGE INCREASED [None]
  - OXYGEN SATURATION DECREASED [None]
  - PAIN [None]
  - PARAESTHESIA [None]
  - PATHOGEN RESISTANCE [None]
  - PCO2 INCREASED [None]
  - PHARYNGOLARYNGEAL PAIN [None]
  - PLATELET COUNT INCREASED [None]
  - PNEUMONIA [None]
  - PNEUMONIA PRIMARY ATYPICAL [None]
  - PNEUMONITIS [None]
  - PYREXIA [None]
  - RALES [None]
  - RASH [None]
  - RECTAL HAEMORRHAGE [None]
  - RED BLOOD CELL COUNT DECREASED [None]
  - RED BLOOD CELL SEDIMENTATION RATE INCREASED [None]
  - RED CELL DISTRIBUTION WIDTH INCREASED [None]
  - REFUSAL OF TREATMENT BY PATIENT [None]
  - RENAL FAILURE [None]
  - RHABDOMYOLYSIS [None]
  - RHINITIS [None]
  - RHINORRHOEA [None]
  - SHOULDER PAIN [None]
  - TACHYCARDIA [None]
  - TREMOR [None]
  - UPPER RESPIRATORY TRACT INFECTION [None]
  - VAGINAL DISORDER [None]
  - VAGINAL HAEMORRHAGE [None]
  - WEIGHT INCREASED [None]
  - WHITE BLOOD CELL COUNT INCREASED [None]
